FAERS Safety Report 15524892 (Version 1)
Quarter: 2018Q4

REPORT INFORMATION
  Report Type: Spontaneous
  Country: US (occurrence: US)
  Receive Date: 20181019
  Receipt Date: 20181019
  Transmission Date: 20190205
  Serious: Yes (Other)
  Sender: FDA-Public Use
  Company Number: US-ELI_LILLY_AND_COMPANY-US201810006467

PATIENT
  Age: 64 Year

DRUGS (1)
  1. CIALIS [Suspect]
     Active Substance: TADALAFIL
     Indication: PRODUCT USED FOR UNKNOWN INDICATION
     Dosage: UNK, UNKNOWN
     Route: 065
     Dates: start: 20140207, end: 20170426

REACTIONS (3)
  - Lymphoma [Unknown]
  - Malignant melanoma stage III [Unknown]
  - Superficial spreading melanoma stage III [Unknown]

NARRATIVE: CASE EVENT DATE: 20170112
